FAERS Safety Report 21478100 (Version 2)
Quarter: 2022Q4

REPORT INFORMATION
  Report Type: Report from Study
  Country: US (occurrence: US)
  Receive Date: 20221019
  Receipt Date: 20221223
  Transmission Date: 20230113
  Serious: Yes (Other)
  Sender: FDA-Public Use
  Company Number: US-ABBVIE-4165538

PATIENT
  Age: 69 Year
  Sex: Male

DRUGS (4)
  1. HUMIRA [Suspect]
     Active Substance: ADALIMUMAB
     Indication: Psoriatic arthropathy
     Dosage: STRENGTH: 40 MILLIGRAM?CITRATE FREE?EVENT ONSET DATE FOR LOWER BACK PAIN AND HUMIRA MEDICATION WA...
     Route: 058
     Dates: start: 20220613
  2. Pfizer/BioNTech [Concomitant]
     Indication: COVID-19 immunisation
     Dosage: 1ST DOSE, 1 IN ONCE
     Route: 030
  3. Pfizer/BioNTech [Concomitant]
     Indication: COVID-19 immunisation
     Dosage: 2ND DOSE, 1 IN ONCE
     Route: 030
  4. Pfizer/BioNTech [Concomitant]
     Indication: COVID-19 immunisation
     Dosage: BOOSTER DOSE, 1 IN ONCE
     Route: 030
     Dates: start: 20220501, end: 20220501

REACTIONS (7)
  - Pneumothorax [Unknown]
  - Rib fracture [Unknown]
  - Road traffic accident [Recovering/Resolving]
  - Therapeutic product effect decreased [Unknown]
  - Skin abrasion [Recovering/Resolving]
  - Scapula fracture [Unknown]
  - Back pain [Recovering/Resolving]

NARRATIVE: CASE EVENT DATE: 20220930
